FAERS Safety Report 21141568 (Version 1)
Quarter: 2022Q3

REPORT INFORMATION
  Report Type: Spontaneous
  Country: FR (occurrence: FR)
  Receive Date: 20220728
  Receipt Date: 20220728
  Transmission Date: 20221027
  Serious: Yes (Congenital Anomaly)
  Sender: FDA-Public Use
  Company Number: None

PATIENT
  Sex: Male

DRUGS (8)
  1. RAMIPRIL [Suspect]
     Active Substance: RAMIPRIL
     Route: 064
     Dates: start: 20191202, end: 202001
  2. PANTOPRAZOLE [Suspect]
     Active Substance: PANTOPRAZOLE
     Route: 064
     Dates: start: 20191202, end: 202001
  3. ETHAMBUTOL HYDROCHLORIDE [Suspect]
     Active Substance: ETHAMBUTOL HYDROCHLORIDE
     Route: 064
     Dates: start: 20191202, end: 202002
  4. FLUCONAZOLE [Suspect]
     Active Substance: FLUCONAZOLE
     Dosage: STRENGTH: 200 MG
     Route: 064
     Dates: start: 20191202, end: 202001
  5. ATOVAQUONE [Suspect]
     Active Substance: ATOVAQUONE
     Dosage: STRENGTH: 750 MG/5 ML
     Route: 064
     Dates: start: 20191202, end: 202001
  6. TRUVADA [Suspect]
     Active Substance: EMTRICITABINE\TENOFOVIR DISOPROXIL FUMARATE
     Dosage: STRENGTH:  200 MG/245 MG
     Route: 064
     Dates: start: 20191202, end: 20200803
  7. RALTEGRAVIR [Suspect]
     Active Substance: RALTEGRAVIR
     Dosage: STRENGTH: 400 MG
     Route: 064
     Dates: start: 20191202, end: 20200803
  8. CLARITHROMYCIN [Suspect]
     Active Substance: CLARITHROMYCIN
     Dosage: STRENGTH: 250 MG
     Route: 064
     Dates: start: 20191202, end: 202002

REACTIONS (3)
  - Congenital foot malformation [Not Recovered/Not Resolved]
  - Phalangeal hypoplasia [Not Recovered/Not Resolved]
  - Foetal exposure during pregnancy [Unknown]

NARRATIVE: CASE EVENT DATE: 20200323
